FAERS Safety Report 6825605-X (Version None)
Quarter: 2010Q3

REPORT INFORMATION
  Report Type: 
  Country: None (occurrence: None)
  Receive Date: 20100708
  Receipt Date: 20080122
  Transmission Date: 20110219
  Serious: No
  Sender: FDA-Public Use
  Company Number: US-PFIZER INC-2006153577

PATIENT
  Sex: Male
  Weight: 123.38 kg

DRUGS (16)
  1. CHANTIX [Suspect]
     Indication: SMOKING CESSATION THERAPY
     Dates: start: 20061205
  2. CLONAZEPAM [Suspect]
  3. PROZAC [Concomitant]
  4. OXYCODONE HCL [Concomitant]
  5. MULTI-VITAMINS [Concomitant]
  6. VITAMIN C [Concomitant]
  7. VITAMIN E [Concomitant]
  8. OMEPRAZOLE [Concomitant]
  9. LISINOPRIL [Concomitant]
  10. METFORMIN HCL [Concomitant]
  11. GLIPIZIDE [Concomitant]
  12. DILTIAZEM [Concomitant]
     Indication: HYPERTENSION
  13. AVANDIA [Concomitant]
  14. SIMVASTATIN [Concomitant]
     Indication: BLOOD CHOLESTEROL INCREASED
  15. FOLIC ACID [Concomitant]
  16. LORAZEPAM [Concomitant]
     Dates: start: 19840101

REACTIONS (2)
  - ABNORMAL DREAMS [None]
  - WOUND [None]
